FAERS Safety Report 24436988 (Version 1)
Quarter: 2024Q4

REPORT INFORMATION
  Report Type: Spontaneous
  Country: US (occurrence: US)
  Receive Date: 20241015
  Receipt Date: 20241015
  Transmission Date: 20250114
  Serious: Yes (Other)
  Sender: STRIDES
  Company Number: US-STRIDES PHARMA UK LTD.-2024SP006344

PATIENT

DRUGS (5)
  1. PREDNISOLONE [Suspect]
     Active Substance: PREDNISOLONE
     Indication: B-cell type acute leukaemia
     Dosage: UNK, EVERY 4 WEEKS (THERAPY WAS CONTINUED UNTIL TREATMENT COMPLETIO)
     Route: 065
  2. METHOTREXATE [Suspect]
     Active Substance: METHOTREXATE
     Indication: B-cell type acute leukaemia
     Dosage: UNK (WEEKLY) (THERAPY WAS CONTINUED UNTIL TREATMENT COMPLETION )
     Route: 065
  3. METHOTREXATE [Suspect]
     Active Substance: METHOTREXATE
     Dosage: UNK (EVERY 12 WEEK) (THERAPY WAS CONTINUED UNTIL TREATMENT COMPLETION )
     Route: 037
  4. MERCAPTOPURINE [Suspect]
     Active Substance: MERCAPTOPURINE
     Indication: B-cell type acute leukaemia
     Dosage: UNK, QD (THERAPY WAS CONTINUED UNTIL TREATMENT COMPLETION )
     Route: 065
  5. VINCRISTINE [Suspect]
     Active Substance: VINCRISTINE
     Indication: B-cell type acute leukaemia
     Dosage: UNK ( THERAPY WAS CONTINUED UNTIL TREATMENT COMPLETION  )
     Route: 065

REACTIONS (2)
  - Molluscum contagiosum [Recovered/Resolved]
  - Off label use [Unknown]
